FAERS Safety Report 14984471 (Version 1)
Quarter: 2018Q2

REPORT INFORMATION
  Report Type: Report from Study
  Country: IT (occurrence: IT)
  Receive Date: 20180607
  Receipt Date: 20180607
  Transmission Date: 20180711
  Serious: Yes (Hospitalization)
  Sender: FDA-Public Use
  Company Number: IT-PFIZER INC-2018230113

PATIENT
  Age: 40 Year
  Sex: Female

DRUGS (13)
  1. CITALOPRAM [Suspect]
     Active Substance: CITALOPRAM HYDROBROMIDE
     Indication: DRUG ABUSE
     Dosage: 1 DF, TOTAL
     Route: 048
     Dates: start: 20180424, end: 20180424
  2. FLURAZEPAM MONOHYDROCHLORIDE [Concomitant]
     Active Substance: FLURAZEPAM MONOHYDROCHLORIDE
     Dosage: 30 MG, CYCLIC
     Route: 048
  3. VALPINAX [Concomitant]
     Active Substance: ANISOTROPINE METHYLBROMIDE\DIAZEPAM
     Dosage: 20 MG, CYCLIC
     Route: 048
  4. DIBASE [Concomitant]
     Active Substance: CHOLECALCIFEROL
     Dosage: 25 KIU, UNK
     Route: 048
  5. ESOMEPRAZOLE SODIUM. [Concomitant]
     Active Substance: ESOMEPRAZOLE SODIUM
     Dosage: 40 MG, CYCLIC
     Route: 048
  6. DELORAZEPAM [Suspect]
     Active Substance: DELORAZEPAM
     Indication: DRUG ABUSE
     Dosage: 1 DF, TOTAL
     Route: 048
     Dates: start: 20180424, end: 20180424
  7. PURSENNID /00571902/ [Concomitant]
     Active Substance: SENNOSIDES A AND B
     Dosage: 2 DF, CYCLIC
     Route: 048
  8. SAMYR /00882301/ [Concomitant]
     Active Substance: ADEMETIONINE
     Indication: DEPRESSION
     Dosage: 200 MG, CYCLIC
     Route: 048
  9. DELORAZEPAM [Suspect]
     Active Substance: DELORAZEPAM
     Dosage: 5 DF, TOTAL
     Route: 048
     Dates: start: 20180424, end: 20180424
  10. LEVOPRAID /01142501/ [Concomitant]
     Active Substance: LEVOSULPIRIDE
     Indication: DEPRESSION
     Dosage: 25 MG, CYCLIC
     Route: 048
  11. FERRO-GRAD [Concomitant]
     Active Substance: FERROUS SULFATE
     Dosage: 1 DF, CYCLIC
     Route: 048
  12. XANAX [Suspect]
     Active Substance: ALPRAZOLAM
     Indication: DRUG ABUSE
     Dosage: 6 DF, TOTAL
     Route: 048
     Dates: start: 20180424, end: 20180424
  13. LYRICA [Concomitant]
     Active Substance: PREGABALIN
     Dosage: 2 DF, CYCLIC
     Route: 048

REACTIONS (1)
  - Drug abuse [Recovering/Resolving]

NARRATIVE: CASE EVENT DATE: 20180424
